FAERS Safety Report 9383546 (Version 2)
Quarter: 2013Q3

REPORT INFORMATION
  Report Type: Spontaneous
  Country: US (occurrence: US)
  Receive Date: 20130704
  Receipt Date: 20130808
  Transmission Date: 20140515
  Serious: No
  Sender: FDA-Public Use
  Company Number: US-PFIZER INC-2013194701

PATIENT
  Sex: Female

DRUGS (1)
  1. METRONIDAZOLE [Suspect]
     Dosage: UNK
     Dates: start: 20130601, end: 20130603

REACTIONS (2)
  - Skin burning sensation [Recovered/Resolved]
  - Paraesthesia [Recovered/Resolved]
